FAERS Safety Report 11952812 (Version 1)
Quarter: 2016Q1

REPORT INFORMATION
  Report Type: Report from Study
  Country: VE (occurrence: VE)
  Receive Date: 20160125
  Receipt Date: 20160125
  Transmission Date: 20160526
  Serious: Yes (Hospitalization, Other)
  Sender: FDA-Public Use
  Company Number: VE-BRISTOL-MYERS SQUIBB COMPANY-BMS-2015-002268

PATIENT
  Age: 15 Year
  Sex: Female

DRUGS (1)
  1. ABATACEPT [Suspect]
     Active Substance: ABATACEPT
     Indication: PRODUCT USED FOR UNKNOWN INDICATION
     Dosage: 250 MG, UNK (2 VIALS FOR PATIENTS{60KG) 12-JAN-2015
     Route: 042
     Dates: start: 20131118

REACTIONS (12)
  - Pleural effusion [Recovering/Resolving]
  - Hypersensitivity [Unknown]
  - Gastritis [Unknown]
  - Dizziness [Unknown]
  - Swelling [Unknown]
  - Haemoglobin decreased [Recovering/Resolving]
  - Cough [Recovered/Resolved]
  - Erythema [Recovered/Resolved]
  - Inflammation [Unknown]
  - Nausea [Unknown]
  - Fracture [Recovering/Resolving]
  - Cheilitis [Unknown]

NARRATIVE: CASE EVENT DATE: 20150112
